FAERS Safety Report 14017561 (Version 7)
Quarter: 2018Q1

REPORT INFORMATION
  Report Type: Report from Study
  Country: DE (occurrence: DE)
  Receive Date: 20170927
  Receipt Date: 20180329
  Transmission Date: 20180508
  Serious: Yes (Hospitalization)
  Sender: FDA-Public Use
  Company Number: DE-BIOGEN-2017BI00463004

PATIENT
  Age: 44 Year
  Sex: Female
  Weight: 67 kg

DRUGS (9)
  1. SIRDALUD [Concomitant]
     Active Substance: TIZANIDINE
     Indication: PAIN
     Route: 048
     Dates: start: 2014
  2. DICLOFENAC [Concomitant]
     Active Substance: DICLOFENAC
     Indication: PAIN
     Route: 048
     Dates: start: 2015
  3. IBUPROFEN. [Concomitant]
     Active Substance: IBUPROFEN
     Indication: PAIN
     Dosage: DOSE 600 (UNSPECIFIED UNIT)
     Route: 048
     Dates: start: 201505
  4. NUVARING [Concomitant]
     Active Substance: ETHINYL ESTRADIOL\ETONOGESTREL
     Indication: CONTRACEPTION
     Route: 065
     Dates: start: 2015
  5. TYSABRI [Suspect]
     Active Substance: NATALIZUMAB
     Indication: MULTIPLE SCLEROSIS
     Dosage: DAILY DOSE: 300 MG MILLGRAM(S) EVERY 4 WEEKS
     Route: 042
     Dates: start: 20140527, end: 20170622
  6. LYRICA [Concomitant]
     Active Substance: PREGABALIN
     Indication: NEURALGIA
     Route: 048
     Dates: start: 2014
  7. SATIVEX [Concomitant]
     Active Substance: NABIXIMOLS
     Indication: MUSCLE SPASTICITY
     Dosage: 10 TO 12 HUBS AS NEEDED
     Route: 048
     Dates: start: 20150515
  8. ZINBRYTA [Suspect]
     Active Substance: DACLIZUMAB
     Indication: RELAPSING-REMITTING MULTIPLE SCLEROSIS
     Dosage: DAILY DOSE: 150 MG MILLGRAM(S) EVERY MONTHS
     Route: 058
     Dates: start: 20170808, end: 20171003
  9. VIGANTOLETTEN [Concomitant]
     Active Substance: CHOLECALCIFEROL
     Indication: VITAMIN D DEFICIENCY
     Dosage: DOSE 1000 (UNSPECIFIED UNIT)
     Route: 048
     Dates: start: 201406

REACTIONS (2)
  - Multiple sclerosis relapse [Recovered/Resolved]
  - Drug effect incomplete [Unknown]

NARRATIVE: CASE EVENT DATE: 20170808
